FAERS Safety Report 8614235-5 (Version None)
Quarter: 2012Q3

REPORT INFORMATION
  Report Type: 
  Country: None (occurrence: None)
  Receive Date: 20120813
  Receipt Date: 20120813
  Transmission Date: 20120928
  Serious: Yes (Hospitalization)
  Sender: FDA-Public Use
  Company Number: None

PATIENT
  Sex: Female
  Weight: 64.6 kg

DRUGS (2)
  1. ETOPOSIDE [Suspect]
     Dosage: 1275 MG
     Dates: end: 20120725
  2. CYTARABINE [Suspect]
     Dosage: 17000 MG
     Dates: end: 20120725

REACTIONS (7)
  - PULMONARY HAEMORRHAGE [None]
  - OXYGEN SATURATION DECREASED [None]
  - BACTERIAL INFECTION [None]
  - BLOOD CULTURE POSITIVE [None]
  - PYREXIA [None]
  - TACHYCARDIA [None]
  - HYPOTENSION [None]
